FAERS Safety Report 9551166 (Version 2)
Quarter: 2013Q4

REPORT INFORMATION
  Report Type: Spontaneous
  Country: US (occurrence: US)
  Receive Date: 20130925
  Receipt Date: 20131015
  Transmission Date: 20140711
  Serious: Yes (Other)
  Sender: FDA-Public Use
  Company Number: US-BIOGENIDEC-2013BI090345

PATIENT
  Age: 49 Year
  Sex: Male
  Weight: 93 kg

DRUGS (8)
  1. TECFIDERA [Suspect]
     Indication: MULTIPLE SCLEROSIS
     Route: 048
     Dates: start: 20130830
  2. KLONOPIN [Concomitant]
  3. NORVASC [Concomitant]
  4. LIPITOR [Concomitant]
  5. LANTUS [Concomitant]
  6. ATENOLOL [Concomitant]
  7. OXYCODONE [Concomitant]
  8. VITAMIND [Concomitant]

REACTIONS (2)
  - Anaphylactic reaction [Recovered/Resolved]
  - Scar [Unknown]
